FAERS Safety Report 4897771-7 (Version None)
Quarter: 2006Q1

REPORT INFORMATION
  Report Type: 
  Country: None (occurrence: None)
  Receive Date: 20060130
  Receipt Date: 20060130
  Transmission Date: 20060701
  Serious: Yes (Life-Threatening, Hospitalization)
  Sender: FDA-Public Use
  Company Number: None

PATIENT
  Age: 3 Year
  Sex: Male
  Weight: 21.3191 kg

DRUGS (3)
  1. ELIDEL [Suspect]
     Indication: ECZEMA
     Dosage: THIN LAYER TWICE DAIY 1 MONTH TOP
     Route: 061
     Dates: start: 20030328, end: 20030426
  2. ELIDEL [Suspect]
     Indication: ERYTHEMA
     Dosage: THIN LAYER TWICE DAIY 1 MONTH TOP
     Route: 061
     Dates: start: 20030328, end: 20030426
  3. ELIDEL [Suspect]
     Indication: SKIN IRRITATION
     Dosage: THIN LAYER TWICE DAIY 1 MONTH TOP
     Route: 061
     Dates: start: 20030328, end: 20030426

REACTIONS (2)
  - CONTRAINDICATION TO MEDICAL TREATMENT [None]
  - RHABDOMYOSARCOMA [None]
